FAERS Safety Report 21360946 (Version 5)
Quarter: 2022Q4

REPORT INFORMATION
  Report Type: Spontaneous
  Country: US (occurrence: US)
  Receive Date: 20220921
  Receipt Date: 20221216
  Transmission Date: 20230113
  Serious: Yes (Other)
  Sender: FDA-Public Use
  Company Number: US-PFIZER INC-202200636899

PATIENT
  Age: 68 Year
  Sex: Female

DRUGS (1)
  1. ALDACTONE [Suspect]
     Active Substance: SPIRONOLACTONE
     Indication: Oliguria
     Dosage: 25 MG, 1X/DAY
     Route: 048

REACTIONS (5)
  - Spinal operation [Unknown]
  - Drug ineffective [Unknown]
  - Cardiac discomfort [Unknown]
  - Anaemia [Unknown]
  - Feeling abnormal [Unknown]
